FAERS Safety Report 11434400 (Version 2)
Quarter: 2015Q3

REPORT INFORMATION
  Report Type: Spontaneous
  Country: US (occurrence: US)
  Receive Date: 20150831
  Receipt Date: 20150910
  Transmission Date: 20151125
  Serious: Yes (Life-Threatening)
  Sender: FDA-Public Use
  Company Number: US-SA-2015SA130282

PATIENT
  Age: 52 Year
  Sex: Female

DRUGS (1)
  1. LOVENOX [Suspect]
     Active Substance: ENOXAPARIN SODIUM
     Indication: SURGERY
     Route: 065

REACTIONS (6)
  - Feeling abnormal [Unknown]
  - Injection site pain [Unknown]
  - Cerebrovascular accident [Unknown]
  - Feeding disorder [Unknown]
  - Somnolence [Unknown]
  - Weight decreased [Unknown]
